FAERS Safety Report 24546539 (Version 1)
Quarter: 2024Q4

REPORT INFORMATION
  Report Type: Report from Study
  Country: IN (occurrence: IN)
  Receive Date: 20241024
  Receipt Date: 20241024
  Transmission Date: 20250114
  Serious: Yes (Other)
  Sender: INCYTE
  Company Number: IN-002147023-NVSC2024IN134498

PATIENT

DRUGS (1)
  1. RUXOLITINIB [Suspect]
     Active Substance: RUXOLITINIB
     Indication: Graft versus host disease
     Dosage: 5 MG, BID
     Route: 048
     Dates: start: 20240502

REACTIONS (20)
  - Pain [Unknown]
  - Hyperplasia [Unknown]
  - Haematochezia [Unknown]
  - Hydronephrosis [Unknown]
  - Chronic myeloid leukaemia [Unknown]
  - Cytokine release syndrome [Unknown]
  - Crepitations [Unknown]
  - Decreased appetite [Unknown]
  - Disseminated mucormycosis [Unknown]
  - Febrile neutropenia [Unknown]
  - Pyrexia [Unknown]
  - Haematuria [Unknown]
  - Cystitis haemorrhagic [Unknown]
  - Hypothyroidism [Unknown]
  - Myeloproliferative neoplasm [Unknown]
  - Performance status decreased [Unknown]
  - Skin lesion [Unknown]
  - Platelet count abnormal [Unknown]
  - Tenderness [Unknown]
  - Abdominal pain [Recovering/Resolving]

NARRATIVE: CASE EVENT DATE: 20240528
